FAERS Safety Report 7756867-2 (Version None)
Quarter: 2011Q3

REPORT INFORMATION
  Report Type: 
  Country: None (occurrence: None)
  Receive Date: 20110916
  Receipt Date: 20110907
  Transmission Date: 20111222
  Serious: Yes (Other)
  Sender: FDA-Public Use
  Company Number: US-BAYER-2011-021391

PATIENT
  Age: 22 Year
  Sex: Female
  Weight: 79.365 kg

DRUGS (1)
  1. YAZ [Suspect]
     Dosage: UNK
     Dates: start: 20080501, end: 20080901

REACTIONS (3)
  - PAIN [None]
  - CHOLECYSTITIS [None]
  - CHOLELITHIASIS [None]
